FAERS Safety Report 5742955-9 (Version None)
Quarter: 2008Q2

REPORT INFORMATION
  Report Type: 
  Country: None (occurrence: None)
  Receive Date: 20080519
  Receipt Date: 20080515
  Transmission Date: 20081010
  Serious: Yes (Death)
  Sender: FDA-Public Use
  Company Number: AU-ASTRAZENECA-2008AP00314

PATIENT
  Age: 17462 Day
  Sex: Male
  Weight: 66 kg

DRUGS (1)
  1. CRESTOR [Suspect]
     Dosage: START DOSE
     Route: 048

REACTIONS (1)
  - SUDDEN DEATH [None]
